FAERS Safety Report 6525254-7 (Version None)
Quarter: 2009Q4

REPORT INFORMATION
  Report Type: 
  Country: None (occurrence: None)
  Receive Date: 20091222
  Receipt Date: 20091207
  Transmission Date: 20100525
  Serious: Yes (Hospitalization)
  Sender: FDA-Public Use
  Company Number: 2009003782

PATIENT
  Age: 57 Year
  Sex: Female

DRUGS (6)
  1. ERLOTINIB HYDROCHLORIDE [Suspect]
     Indication: NON-SMALL CELL LUNG CANCER METASTATIC
     Dosage: (QD),ORAL
     Route: 048
     Dates: start: 20091116
  2. MORPHINE [Concomitant]
  3. LANSOPRAZOLE [Concomitant]
  4. ACETAMINOPHEN [Concomitant]
  5. DIPROBASE [Concomitant]
  6. DEXAMETHASONE TAB [Concomitant]

REACTIONS (4)
  - LUNG INFECTION [None]
  - PELVIC PAIN [None]
  - PLEURITIC PAIN [None]
  - THROMBOCYTOPENIA [None]
